FAERS Safety Report 12903563 (Version 1)
Quarter: 2016Q4

REPORT INFORMATION
  Report Type: Spontaneous
  Country: US (occurrence: US)
  Receive Date: 20161102
  Receipt Date: 20161102
  Transmission Date: 20170207
  Serious: No
  Sender: FDA-Public Use
  Company Number: US-LUNDBECK-DKLU2021477

PATIENT
  Age: 33 Year
  Sex: Female

DRUGS (1)
  1. NORTHERA [Suspect]
     Active Substance: DROXIDOPA
     Indication: PRODUCT USED FOR UNKNOWN INDICATION
     Route: 065
     Dates: start: 20161013

REACTIONS (6)
  - Bronchitis [Unknown]
  - Headache [Unknown]
  - Gastroenteritis viral [Unknown]
  - Sinusitis [Unknown]
  - Drug dose titration not performed [Unknown]
  - Vomiting [Unknown]

NARRATIVE: CASE EVENT DATE: 20161013
